FAERS Safety Report 12218662 (Version 2)
Quarter: 2016Q2

REPORT INFORMATION
  Report Type: Report from Study
  Country: US (occurrence: US)
  Receive Date: 20160329
  Receipt Date: 20160610
  Transmission Date: 20160815
  Serious: No
  Sender: FDA-Public Use
  Company Number: GXBR2016US000656

PATIENT
  Age: 46 Year
  Sex: Female

DRUGS (1)
  1. GLATOPA [Suspect]
     Active Substance: GLATIRAMER ACETATE
     Indication: MULTIPLE SCLEROSIS
     Dosage: 20 MG, QD
     Route: 065
     Dates: start: 20150209

REACTIONS (2)
  - Underdose [Not Recovered/Not Resolved]
  - Drug administered in wrong device [Not Recovered/Not Resolved]

NARRATIVE: CASE EVENT DATE: 20150902
